FAERS Safety Report 6237605-1 (Version None)
Quarter: 2009Q2

REPORT INFORMATION
  Report Type: 
  Country: None (occurrence: None)
  Receive Date: 20090616
  Receipt Date: 20090612
  Transmission Date: 20091009
  Serious: Yes (Death)
  Sender: FDA-Public Use
  Company Number: JPI-P-007226

PATIENT
  Age: 33 Year
  Sex: Male

DRUGS (7)
  1. XYREM [Suspect]
     Indication: INSOMNIA
     Dosage: 6 GM (3 GM, 2 IN 1 D), ORAL, 24 GM (8 GM, 3 IN 1 D), ORAL, 24 GM (8 GM, 3 IN 1 D), O RAL
     Route: 048
     Dates: start: 20041202, end: 20060101
  2. XYREM [Suspect]
     Indication: NARCOLEPSY
     Dosage: 6 GM (3 GM, 2 IN 1 D), ORAL, 24 GM (8 GM, 3 IN 1 D), ORAL, 24 GM (8 GM, 3 IN 1 D), O RAL
     Route: 048
     Dates: start: 20041202, end: 20060101
  3. XYREM [Suspect]
     Indication: INSOMNIA
     Dosage: 6 GM (3 GM, 2 IN 1 D), ORAL, 24 GM (8 GM, 3 IN 1 D), ORAL, 24 GM (8 GM, 3 IN 1 D), O RAL
     Route: 048
     Dates: end: 20070805
  4. XYREM [Suspect]
     Indication: NARCOLEPSY
     Dosage: 6 GM (3 GM, 2 IN 1 D), ORAL, 24 GM (8 GM, 3 IN 1 D), ORAL, 24 GM (8 GM, 3 IN 1 D), O RAL
     Route: 048
     Dates: end: 20070805
  5. XYREM [Suspect]
     Indication: INSOMNIA
     Dosage: 6 GM (3 GM, 2 IN 1 D), ORAL, 24 GM (8 GM, 3 IN 1 D), ORAL, 24 GM (8 GM, 3 IN 1 D), O RAL
     Route: 048
     Dates: start: 20070829
  6. XYREM [Suspect]
     Indication: NARCOLEPSY
     Dosage: 6 GM (3 GM, 2 IN 1 D), ORAL, 24 GM (8 GM, 3 IN 1 D), ORAL, 24 GM (8 GM, 3 IN 1 D), O RAL
     Route: 048
     Dates: start: 20070829
  7. UNSPECIFIED DRUGS [Suspect]
     Indication: DRUG USE FOR UNKNOWN INDICATION

REACTIONS (3)
  - BRONCHOPNEUMONIA [None]
  - DRUG LEVEL INCREASED [None]
  - INFLUENZA LIKE ILLNESS [None]
